FAERS Safety Report 8525560-0 (Version None)
Quarter: 2012Q3

REPORT INFORMATION
  Report Type: 
  Country: None (occurrence: None)
  Receive Date: 20120720
  Receipt Date: 20120713
  Transmission Date: 20120928
  Serious: Yes (Other)
  Sender: FDA-Public Use
  Company Number: DE-009507513-1207DEU004760

PATIENT

DRUGS (7)
  1. MIRTAZAPINE [Suspect]
     Indication: SLEEP DISORDER
     Dosage: 40 MG, QD
     Route: 048
     Dates: start: 20120427, end: 20120612
  2. BUPROPION HYDROCHLORIDE [Suspect]
     Indication: DEPRESSION
     Dosage: 150 MG, QD
     Route: 048
     Dates: start: 20120502, end: 20120612
  3. PANTOPRAZOLE [Concomitant]
     Dosage: 20 MG, UNK
     Route: 048
  4. ACC LONG [Concomitant]
     Dosage: 1 DF, UNK
     Route: 048
  5. DIPIPERON [Suspect]
     Indication: DEPRESSION
     Dosage: 45 MG, QD
     Route: 048
     Dates: start: 20120514, end: 20120612
  6. NEO-ANGIN (AMYLMETACRESOL (+) DICHLOROBENZYL ALCOHOL (+) MENTHOL) [Concomitant]
     Dosage: 5 DF, QD
     Route: 048
  7. IBUPROFEN [Concomitant]
     Dosage: 400 MG, TID
     Route: 048

REACTIONS (3)
  - ASPARTATE AMINOTRANSFERASE INCREASED [None]
  - ALANINE AMINOTRANSFERASE INCREASED [None]
  - BLOOD CREATINE PHOSPHOKINASE INCREASED [None]
